FAERS Safety Report 5353655-1 (Version None)
Quarter: 2007Q2

REPORT INFORMATION
  Report Type: 
  Country: None (occurrence: None)
  Receive Date: 20070608
  Receipt Date: 20070528
  Transmission Date: 20071010
  Serious: Yes (Death)
  Sender: FDA-Public Use
  Company Number: 2000000435-FJ

PATIENT
  Age: 10 Year
  Sex: Female
  Weight: 38 kg

DRUGS (6)
  1. PROGRAF [Suspect]
     Indication: CORD BLOOD TRANSPLANT THERAPY
     Dosage: 1.2 MG, CONTINUOUS, IV DRIP
     Route: 041
     Dates: start: 19991114, end: 19991215
  2. FUNGIZONE INJECTION [Concomitant]
  3. PREDNISOLONE [Concomitant]
  4. BUSULFAN (BUSULFAN) [Concomitant]
  5. ETOPOSIDE [Concomitant]
  6. NIMUSTINE HYDROCHLORIDE (NIMUSTINE HYDROCHLORIDE) [Concomitant]

REACTIONS (12)
  - ACUTE GRAFT VERSUS HOST DISEASE IN SKIN [None]
  - ANAEMIA [None]
  - BACK PAIN [None]
  - CYSTITIS HAEMORRHAGIC [None]
  - ENCEPHALOPATHY [None]
  - ENTEROCOLITIS HAEMORRHAGIC [None]
  - GENERAL PHYSICAL HEALTH DETERIORATION [None]
  - GRAND MAL CONVULSION [None]
  - IMMUNOSUPPRESSION [None]
  - MUSCLE HAEMORRHAGE [None]
  - PULMONARY HAEMORRHAGE [None]
  - THROMBOTIC MICROANGIOPATHY [None]
